FAERS Safety Report 13312348 (Version 1)
Quarter: 2017Q1

REPORT INFORMATION
  Report Type: Spontaneous
  Country: US (occurrence: US)
  Receive Date: 20170309
  Receipt Date: 20170309
  Transmission Date: 20170428
  Serious: No
  Sender: FDA-Public Use
  Company Number: US-ASTRAZENECA-2017SE23054

PATIENT
  Sex: Male
  Weight: 81.6 kg

DRUGS (2)
  1. ROSUVASTATIN CALCIUM. [Suspect]
     Active Substance: ROSUVASTATIN CALCIUM
     Indication: BLOOD CHOLESTEROL ABNORMAL
     Route: 048
  2. BRILINTA [Suspect]
     Active Substance: TICAGRELOR
     Indication: STENT PLACEMENT
     Route: 048
     Dates: start: 20161001

REACTIONS (4)
  - Ocular hyperaemia [Not Recovered/Not Resolved]
  - Gastrooesophageal reflux disease [Unknown]
  - Hypertension [Unknown]
  - Ulcer [Unknown]
